FAERS Safety Report 8768301 (Version 2)
Quarter: 2012Q4

REPORT INFORMATION
  Report Type: 
  Country: US (occurrence: US)
  Receive Date: 20120905
  Receipt Date: 20121030
  Transmission Date: 20130627
  Serious: Yes (Hospitalization, Other)
  Sender: FDA-Public Use
  Company Number: US-ROCHE-1065788

PATIENT
  Sex: Male
  Weight: 163.44 kg

DRUGS (3)
  1. ACCUTANE [Suspect]
     Indication: ACNE
     Dosage: approximately for 01 year
     Route: 065
     Dates: start: 1993
  2. ACCUTANE [Suspect]
     Dosage: for 03-06 months
     Route: 065
     Dates: start: 1997
  3. ACCUTANE [Suspect]
     Route: 065
     Dates: start: 20000808, end: 20001007

REACTIONS (5)
  - Colitis ulcerative [Unknown]
  - Crohn^s disease [Unknown]
  - Inflammatory bowel disease [Unknown]
  - Anal fissure [Unknown]
  - Depression [Unknown]
